FAERS Safety Report 25179441 (Version 1)
Quarter: 2025Q2

REPORT INFORMATION
  Report Type: Report from Study
  Country: KR (occurrence: KR)
  Receive Date: 20250409
  Receipt Date: 20250409
  Transmission Date: 20250717
  Serious: Yes (Hospitalization)
  Sender: TAKEDA
  Company Number: KR-TAKEDA-2025TUS035004

PATIENT
  Age: 37 Year
  Sex: Male
  Weight: 59 kg

DRUGS (3)
  1. VEDOLIZUMAB [Suspect]
     Active Substance: VEDOLIZUMAB
     Indication: Crohn^s disease
  2. Citopcin [Concomitant]
     Indication: Adverse event
     Dosage: UNK UNK, BID
     Dates: start: 20210504, end: 20210521
  3. Noltec [Concomitant]
     Indication: Gastritis prophylaxis
     Dosage: 10 MILLIGRAM, BID
     Dates: start: 20210504, end: 20210521

REACTIONS (1)
  - Abdominal pain upper [Recovered/Resolved]

NARRATIVE: CASE EVENT DATE: 20210401
